FAERS Safety Report 9265978 (Version 1)
Quarter: 2013Q2

REPORT INFORMATION
  Report Type: Spontaneous
  Country: US (occurrence: US)
  Receive Date: 20130501
  Receipt Date: 20130501
  Transmission Date: 20140414
  Serious: Yes (Hospitalization, Other)
  Sender: FDA-Public Use
  Company Number: US-PFIZER INC-2013131672

PATIENT
  Age: 57 Year
  Sex: Female
  Weight: 61.22 kg

DRUGS (4)
  1. CORTISONE [Suspect]
     Dosage: UNK
     Dates: start: 200209
  2. LYRICA [Suspect]
     Indication: FIBROMYALGIA
     Dosage: 50 MG, 2X/DAY
  3. DIAZEPAM [Concomitant]
     Indication: SPINAL OSTEOARTHRITIS
     Dosage: 5 MG, 2X/DAY
     Dates: start: 2002
  4. PERCOCET [Concomitant]
     Dosage: 10/325 MG, AS NEEDED

REACTIONS (7)
  - Diabetes mellitus [Unknown]
  - Vision blurred [Unknown]
  - Nervous system disorder [Unknown]
  - Pancreatic disorder [Unknown]
  - Pain [Not Recovered/Not Resolved]
  - Disturbance in attention [Unknown]
  - Feeling hot [Unknown]
